FAERS Safety Report 17137252 (Version 7)
Quarter: 2020Q3

REPORT INFORMATION
  Report Type: Report from Study
  Country: IT (occurrence: IT)
  Receive Date: 20191210
  Receipt Date: 20200915
  Transmission Date: 20201102
  Serious: Yes (Life-Threatening, Hospitalization, Disabling, Other)
  Sender: FDA-Public Use
  Company Number: IT-BRISTOL-MYERS SQUIBB COMPANY-BMS-2019-117904

PATIENT
  Age: 59 Year
  Sex: Female
  Weight: 61 kg

DRUGS (5)
  1. EPOETIN [Concomitant]
     Active Substance: ERYTHROPOIETIN
     Indication: PRODUCT USED FOR UNKNOWN INDICATION
     Dosage: 1 DOSAGE FORM
     Route: 065
     Dates: start: 20191017
  2. GEMCITABINE HYDROCHLORIDE. [Suspect]
     Active Substance: GEMCITABINE HYDROCHLORIDE
     Indication: PANCREATIC CARCINOMA
     Dosage: 1680 MILLIGRAM
     Route: 065
     Dates: start: 20190607, end: 20191128
  3. PACLITAXEL ALBUMIN [Suspect]
     Active Substance: PACLITAXEL
     Indication: PANCREATIC CARCINOMA
     Dosage: 210 MILLIGRAM
     Route: 065
     Dates: start: 20190607, end: 20191128
  4. NIVOLUMAB [Suspect]
     Active Substance: NIVOLUMAB
     Indication: PANCREATIC CARCINOMA
     Dosage: 480 MILLIGRAM
     Route: 042
     Dates: start: 20190607, end: 20191114
  5. CABIRALIZUMAB [Suspect]
     Active Substance: CABIRALIZUMAB
     Indication: PANCREATIC CARCINOMA
     Dosage: 244 MILLIGRAM
     Route: 042
     Dates: start: 20190607, end: 20191128

REACTIONS (2)
  - Haematoma [Recovering/Resolving]
  - Capillary leak syndrome [Recovering/Resolving]

NARRATIVE: CASE EVENT DATE: 20191205
